FAERS Safety Report 8968258 (Version 1)
Quarter: 2012Q4

REPORT INFORMATION
  Report Type: 
  Country: AT (occurrence: AT)
  Receive Date: 20121218
  Receipt Date: 20121218
  Transmission Date: 20130627
  Serious: Yes (Other)
  Sender: FDA-Public Use
  Company Number: AT-PFIZER INC-2012311695

PATIENT
  Age: 55 Year
  Sex: Female
  Weight: 84 kg

DRUGS (14)
  1. PANTOLOC [Suspect]
     Indication: GASTROINTESTINAL DISORDER
     Dosage: 40 mg, daily
     Dates: start: 20091217
  2. MYFORTIC [Suspect]
     Indication: KIDNEY TRANSPLANT
     Dosage: 1440 mg, daily
     Dates: start: 20100406, end: 20100510
  3. MYFORTIC [Suspect]
     Dosage: 1080 mg, daily
     Dates: start: 20100511
  4. TACROLIMUS [Suspect]
     Indication: IMMUNOSUPPRESSION
     Dosage: 4 mg, daily
     Dates: start: 20091217
  5. PASPERTIN [Suspect]
     Indication: NAUSEA
     Dosage: UNK
     Dates: start: 20100406, end: 20100424
  6. APREDNISLON [Suspect]
     Indication: IMMUNOSUPPRESSION
     Dosage: 10 / 5 mg, daily, alternating
     Dates: start: 20091217
  7. APREDNISLON [Suspect]
     Dosage: 5 mg, daily
  8. CONCOR [Suspect]
     Indication: HYPERTENSION
     Dosage: UNK
     Dates: start: 20091217
  9. NEUROBION FORTE [Suspect]
     Indication: PSYCHOGENIC POLYDIPSIA
     Dosage: UNK
     Dates: start: 20091217
  10. DIAMICRON [Suspect]
     Indication: DIABETES MELLITUS
     Dosage: UNK
     Dates: start: 20100126, end: 20110202
  11. ASCALAN [Suspect]
     Indication: HYPERTENSION
     Dosage: 4 mg, UNK
     Dates: start: 20100202, end: 20100510
  12. MAGNESIUM VERLA [Suspect]
     Indication: HYPOMAGNESAEMIA
     Dosage: UNK
     Dates: start: 20091217
  13. VITAMIN D [Suspect]
     Dosage: UNK
     Dates: start: 20091217, end: 20111213
  14. MOTRIM [Concomitant]
     Dosage: UNK
     Dates: start: 20100511

REACTIONS (1)
  - Hyperuricaemia [Recovered/Resolved]
